FAERS Safety Report 14232019 (Version 1)
Quarter: 2017Q4

REPORT INFORMATION
  Report Type: Spontaneous
  Country: US (occurrence: US)
  Receive Date: 20171128
  Receipt Date: 20171128
  Transmission Date: 20180321
  Serious: No
  Sender: FDA-Public Use
  Company Number: US-LEADIANT BIOSCIENCES INC-2016STPI000946

PATIENT
  Age: 26 Year
  Sex: Male

DRUGS (10)
  1. VINCRISTINE [Concomitant]
     Active Substance: VINCRISTINE
  2. OXYCODONE [Concomitant]
     Active Substance: OXYCODONE
  3. ZOFRAN [Concomitant]
     Active Substance: ONDANSETRON HYDROCHLORIDE
  4. LORAZEPAM. [Concomitant]
     Active Substance: LORAZEPAM
  5. CYCLOPHOSPHAMIDE. [Concomitant]
     Active Substance: CYCLOPHOSPHAMIDE
  6. ETOPOSIDE. [Concomitant]
     Active Substance: ETOPOSIDE
  7. BLEOMYCIN [Concomitant]
     Active Substance: BLEOMYCIN SULFATE
  8. MATULANE [Suspect]
     Active Substance: PROCARBAZINE HYDROCHLORIDE
     Indication: HODGKIN^S DISEASE
     Dosage: 200 MG. QD X 7 DAYS
     Route: 048
     Dates: start: 20161101
  9. DOXORUBICIN [Concomitant]
     Active Substance: DOXORUBICIN
  10. OXYCODONE WITH APAP [Concomitant]
     Active Substance: ACETAMINOPHEN\OXYCODONE HYDROCHLORIDE

REACTIONS (3)
  - Vomiting [Not Recovered/Not Resolved]
  - Decreased appetite [Not Recovered/Not Resolved]
  - Alopecia [Not Recovered/Not Resolved]

NARRATIVE: CASE EVENT DATE: 20161102
